FAERS Safety Report 22157459 (Version 1)
Quarter: 2023Q1

REPORT INFORMATION
  Report Type: Spontaneous
  Country: US (occurrence: US)
  Receive Date: 20230330
  Receipt Date: 20230330
  Transmission Date: 20230418
  Serious: Yes (Hospitalization)
  Sender: FDA-Public Use
  Company Number: US-DSJP-DSU-2023-112017

PATIENT

DRUGS (3)
  1. ENHERTU [Suspect]
     Active Substance: FAM-TRASTUZUMAB DERUXTECAN-NXKI
     Indication: Metastatic neoplasm
     Dosage: UNK
     Route: 065
     Dates: start: 2021
  2. FILGRASTIM [Suspect]
     Active Substance: FILGRASTIM
     Indication: Metastatic neoplasm
     Route: 065
  3. ZOLEDRONIC ACID [Suspect]
     Active Substance: ZOLEDRONIC ACID
     Indication: Metastatic neoplasm
     Route: 065

REACTIONS (1)
  - Generalised oedema [Unknown]
